FAERS Safety Report 20518613 (Version 8)
Quarter: 2022Q2

REPORT INFORMATION
  Report Type: Spontaneous
  Country: US (occurrence: US)
  Receive Date: 20220225
  Receipt Date: 20220413
  Transmission Date: 20220721
  Serious: Yes (Hospitalization, Other)
  Sender: FDA-Public Use
  Company Number: US-009507513-2202USA007486

PATIENT
  Sex: Female

DRUGS (3)
  1. ZERBAXA [Suspect]
     Active Substance: CEFTOLOZANE SULFATE\TAZOBACTAM SODIUM
     Indication: Pneumonia pseudomonal
     Dosage: 1500 MILLIGRAM, EVERY 8 HOURS
     Dates: start: 20220109, end: 20220115
  2. ZERBAXA [Suspect]
     Active Substance: CEFTOLOZANE SULFATE\TAZOBACTAM SODIUM
     Dosage: UNK
     Dates: start: 20220119, end: 20220126
  3. ZERBAXA [Suspect]
     Active Substance: CEFTOLOZANE SULFATE\TAZOBACTAM SODIUM
     Dosage: UNK
     Dates: start: 20220219, end: 20220222

REACTIONS (5)
  - Bacteraemia [Unknown]
  - Pneumonia pseudomonal [Unknown]
  - Product contamination microbial [Unknown]
  - Drug ineffective [Unknown]
  - Product contamination physical [Unknown]

NARRATIVE: CASE EVENT DATE: 20220101
